FAERS Safety Report 5165335-6 (Version None)
Quarter: 2006Q4

REPORT INFORMATION
  Report Type: 
  Country: None (occurrence: None)
  Receive Date: 20061206
  Receipt Date: 20010103
  Transmission Date: 20070319
  Serious: Yes (Life-Threatening, Hospitalization)
  Sender: FDA-Public Use
  Company Number: 10663284

PATIENT
  Age: 8 Year
  Sex: Female

DRUGS (4)
  1. DROXIA CAPS [Suspect]
     Indication: SICKLE CELL ANAEMIA
     Route: 048
     Dates: start: 19990404, end: 19990409
  2. CLAFORAN [Suspect]
     Indication: SICKLE CELL ANAEMIA
     Dates: start: 19990329, end: 19990403
  3. JOSACINE [Suspect]
     Indication: SICKLE CELL ANAEMIA
     Dates: start: 19990329, end: 19990408
  4. AUGMENTIN '125' [Suspect]
     Indication: SICKLE CELL ANAEMIA
     Dates: start: 19990329, end: 19990408

REACTIONS (1)
  - HAEMOLYSIS [None]
